FAERS Safety Report 5804817-8 (Version None)
Quarter: 2008Q3

REPORT INFORMATION
  Report Type: 
  Country: None (occurrence: None)
  Receive Date: 20080709
  Receipt Date: 20080628
  Transmission Date: 20090109
  Serious: Yes (Death)
  Sender: FDA-Public Use
  Company Number: IR-ROCHE-573022

PATIENT
  Age: 25 Year
  Sex: Male

DRUGS (2)
  1. PEGASYS [Suspect]
     Dosage: FORM: PRE-FILLED SYRINGES, STARTED THREE YEARS BEFORE
     Route: 065
  2. COPEGUS [Suspect]
     Dosage: STARTED THREE YEARS BEFORE
     Route: 065

REACTIONS (3)
  - COUGH [None]
  - DEATH [None]
  - TUBERCULOSIS [None]
